FAERS Safety Report 8611386-6 (Version None)
Quarter: 2012Q3

REPORT INFORMATION
  Report Type: 
  Country: None (occurrence: None)
  Receive Date: 20120822
  Receipt Date: 20120820
  Transmission Date: 20120928
  Serious: Yes (Other)
  Sender: FDA-Public Use
  Company Number: US-PFIZER INC-2012168519

PATIENT
  Age: 42 Year
  Sex: Male
  Weight: 102.04 kg

DRUGS (3)
  1. PRISTIQ [Suspect]
     Indication: DEPRESSION
     Dosage: UNK, 1X/DAY
     Route: 048
     Dates: start: 20100101, end: 20120705
  2. METHYLPHENIDATE [Concomitant]
     Dosage: UNK
  3. LORAZEPAM [Concomitant]
     Dosage: UNK

REACTIONS (7)
  - FEELING ABNORMAL [None]
  - AGITATION [None]
  - WITHDRAWAL SYNDROME [None]
  - FEELING COLD [None]
  - DIZZINESS [None]
  - CRYING [None]
  - TREMOR [None]
